FAERS Safety Report 5201017-X (Version None)
Quarter: 2007Q1

REPORT INFORMATION
  Report Type: 
  Country: None (occurrence: None)
  Receive Date: 20070108
  Receipt Date: 20070105
  Transmission Date: 20070707
  Serious: Yes (Hospitalization)
  Sender: FDA-Public Use
  Company Number: IT-GLAXOSMITHKLINE-B0453048A

PATIENT
  Age: 43 Year
  Sex: Female

DRUGS (1)
  1. AUGMENTIN '125' [Suspect]
     Indication: ACUTE TONSILLITIS
     Dosage: 1G TWICE PER DAY
     Route: 048
     Dates: start: 20061222, end: 20061222

REACTIONS (3)
  - ANGIOEDEMA [None]
  - BLOOD PRESSURE DECREASED [None]
  - URTICARIA [None]
